FAERS Safety Report 8618524-X (Version None)
Quarter: 2012Q3

REPORT INFORMATION
  Report Type: 
  Country: None (occurrence: None)
  Receive Date: 20120810
  Receipt Date: 20120727
  Transmission Date: 20120928
  Serious: Yes (Hospitalization)
  Sender: FDA-Public Use
  Company Number: UTC-020988

PATIENT
  Age: 65 Year
  Sex: Male
  Weight: 74.55 kg

DRUGS (15)
  1. TEMAZEPAM (TEMAZEPAM) (CAPSULE) [Concomitant]
  2. LASIX [Concomitant]
  3. CYCLOBENZAPRINE (CYCLOBENZAPRINE) (TABLET) [Concomitant]
  4. OXYGEN (OXYGEN) [Concomitant]
  5. TYVASO [Suspect]
     Indication: PULMONARY ARTERIAL HYPERTENSION
     Dosage: 18-54 MCG (4 IN 1 D), INHALATION
     Route: 055
     Dates: start: 20120614
  6. CARVEDILOL (CARVEDILOL) (TABLET) [Concomitant]
  7. DIGOXIN [Concomitant]
  8. DULOXETINE HYDROCHLORIDE [Concomitant]
  9. REQUIP (ROPINIROLE HYDROCHLORIDE) (TABLET) [Concomitant]
  10. SPIRIVA [Concomitant]
  11. DUCOSATE CALCIUM (DOCUSATE CALCIUM) [Concomitant]
  12. DUONEB [Concomitant]
  13. COUMADIN [Concomitant]
  14. ZOCOR [Concomitant]
  15. ALBUTEROL [Concomitant]

REACTIONS (4)
  - FATIGUE [None]
  - CHRONIC OBSTRUCTIVE PULMONARY DISEASE [None]
  - OEDEMA PERIPHERAL [None]
  - DISEASE COMPLICATION [None]
